FAERS Safety Report 13959947 (Version 1)
Quarter: 2017Q3

REPORT INFORMATION
  Report Type: Spontaneous
  Country: TR (occurrence: TR)
  Receive Date: 20170911
  Receipt Date: 20170911
  Transmission Date: 20171128
  Serious: Yes (Life-Threatening, Hospitalization)
  Sender: FDA-Public Use
  Company Number: TR-ELI_LILLY_AND_COMPANY-TR201709002472

PATIENT
  Age: 45 Year
  Sex: Male

DRUGS (3)
  1. HUMAN INSULIN (RDNA ORIGIN) REGULAR [Suspect]
     Active Substance: INSULIN HUMAN
     Indication: DIABETIC KETOACIDOSIS
     Dosage: 0.1 IU/KG, SINGLE
     Route: 042
  2. SALINE                             /00075401/ [Concomitant]
     Active Substance: SODIUM CHLORIDE
     Indication: DIABETIC KETOACIDOSIS
     Dosage: 2000 ML, UNKNOWN
     Route: 042
  3. HUMAN INSULIN (RDNA ORIGIN) REGULAR [Suspect]
     Active Substance: INSULIN HUMAN
     Dosage: 0.1 IU/KG, EVERY HOUR

REACTIONS (2)
  - Hypersensitivity [Recovered/Resolved]
  - Acute kidney injury [Unknown]
